FAERS Safety Report 20195741 (Version 1)
Quarter: 2021Q4

REPORT INFORMATION
  Report Type: Spontaneous
  Country: DE (occurrence: DE)
  Receive Date: 20211216
  Receipt Date: 20211216
  Transmission Date: 20220303
  Serious: Yes (Other)
  Sender: FDA-Public Use
  Company Number: DE-002147023-NVSC2021DE283898

PATIENT

DRUGS (3)
  1. RUXOLITINIB [Suspect]
     Active Substance: RUXOLITINIB
     Indication: Acute graft versus host disease
     Dosage: 20 MG, QD
     Route: 065
  2. CYCLOSPORINE [Suspect]
     Active Substance: CYCLOSPORINE
     Indication: Acute graft versus host disease
     Dosage: UNK
     Route: 065
  3. PREDNISOLONE [Suspect]
     Active Substance: PREDNISOLONE
     Indication: Acute graft versus host disease
     Route: 065

REACTIONS (8)
  - Blood albumin abnormal [Unknown]
  - Diarrhoea [Unknown]
  - Type 1 diabetes mellitus [Unknown]
  - Eye disorder [Unknown]
  - Skin disorder [Unknown]
  - Oral disorder [Unknown]
  - Product use in unapproved indication [Unknown]
  - Muscle disorder [Unknown]
